FAERS Safety Report 9125128 (Version 1)
Quarter: 2013Q1

REPORT INFORMATION
  Report Type: Spontaneous
  Country: ZA (occurrence: ZA)
  Receive Date: 20130227
  Receipt Date: 20130227
  Transmission Date: 20140127
  Serious: Yes (Death, Hospitalization)
  Sender: FDA-Public Use
  Company Number: ZA-WATSON-2013-03090

PATIENT
  Age: 33 Year
  Sex: Female

DRUGS (10)
  1. SULFAMETHOXAZOLE-TRIMETHOPRIM [Suspect]
     Indication: ISOSPORIASIS
     Dosage: 1920 MG, BID
     Route: 065
  2. CIPROFLOXACIN [Concomitant]
     Indication: ISOSPORIASIS
     Dosage: 500 MG, BID
     Route: 065
  3. STAVUDINE [Concomitant]
     Indication: HIV INFECTION
     Dosage: UNK, UNKNOWN
     Route: 065
  4. LAMIVUDINE [Concomitant]
     Indication: HIV INFECTION
     Dosage: UNK, UNKNOWN
     Route: 065
  5. NEVIRAPINE [Concomitant]
     Indication: HIV INFECTION
     Dosage: UNK, UNKNOWN
     Route: 065
  6. EFAVIRENZ [Concomitant]
     Indication: HIV INFECTION
     Dosage: UNK, UNKNOWN
     Route: 065
  7. ZIDOVUDINE [Concomitant]
     Indication: HIV INFECTION
     Dosage: UNK, UNKNOWN
     Route: 065
  8. PAROMOMYCIN [Concomitant]
     Indication: ISOSPORIASIS
     Dosage: UNK, UNKNOWN
     Route: 065
  9. PYRIMETHAMINE [Concomitant]
     Indication: ISOSPORIASIS
     Dosage: UNK, UNKNOWN
     Route: 065
  10. NITAZOXANIDE [Concomitant]
     Indication: ISOSPORIASIS
     Dosage: UNK, UNKNOWN
     Route: 065

REACTIONS (3)
  - Pathogen resistance [Fatal]
  - Drug ineffective [Fatal]
  - Diarrhoea [None]
